FAERS Safety Report 14183180 (Version 2)
Quarter: 2017Q4

REPORT INFORMATION
  Report Type: Spontaneous
  Country: US (occurrence: US)
  Receive Date: 20171113
  Receipt Date: 20171222
  Transmission Date: 20180321
  Serious: Yes (Hospitalization)
  Sender: FDA-Public Use
  Company Number: US-UNITED THERAPEUTICS-UNT-2017-016026

PATIENT
  Sex: Female

DRUGS (2)
  1. REMODULIN [Suspect]
     Active Substance: TREPROSTINIL
     Indication: PULMONARY ARTERIAL HYPERTENSION
     Dosage: 0.220 ?G/KG, CONTINUING
     Route: 041
     Dates: start: 20110321
  2. REMODULIN [Suspect]
     Active Substance: TREPROSTINIL
     Dosage: 0.220 ?G/KG, CONTINUING
     Route: 041
     Dates: start: 20171016

REACTIONS (2)
  - Pneumonia [Unknown]
  - Hypoxia [Unknown]

NARRATIVE: CASE EVENT DATE: 20171107
